FAERS Safety Report 4760686-9 (Version None)
Quarter: 2005Q3

REPORT INFORMATION
  Report Type: 
  Country: None (occurrence: None)
  Receive Date: 20050902
  Receipt Date: 20050711
  Transmission Date: 20060218
  Serious: Yes (Hospitalization)
  Sender: FDA-Public Use
  Company Number: FR-NOVOPROD-245438

PATIENT
  Age: 84 Year
  Sex: Female
  Weight: 58 kg

DRUGS (8)
  1. NOVONORM [Suspect]
     Indication: DIABETES MELLITUS
     Dosage: 3 TABLETS PER DAY
     Dates: start: 20050619, end: 20050619
  2. BEFIZAL [Concomitant]
  3. TENORMIN [Concomitant]
  4. LASILIX [Concomitant]
  5. STABLON [Concomitant]
  6. FOZITEC [Concomitant]
  7. AMLOR [Concomitant]
  8. KARDEGIC [Concomitant]

REACTIONS (2)
  - DEPRESSED LEVEL OF CONSCIOUSNESS [None]
  - HYPOGLYCAEMIA [None]
